FAERS Safety Report 19485888 (Version 1)
Quarter: 2021Q3

REPORT INFORMATION
  Report Type: Spontaneous
  Country: JP (occurrence: JP)
  Receive Date: 20210702
  Receipt Date: 20210702
  Transmission Date: 20211014
  Serious: Yes (Other)
  Sender: FDA-Public Use
  Company Number: JP-PFIZER INC-2021553665

PATIENT
  Age: 62 Year
  Sex: Male

DRUGS (10)
  1. NIFEDIPINE. [Suspect]
     Active Substance: NIFEDIPINE
     Dosage: UNK
  2. LANTHANUM CARBONATE. [Concomitant]
     Active Substance: LANTHANUM CARBONATE
     Dosage: UNK
  3. ALFACALCIDOL [Concomitant]
     Active Substance: ALFACALCIDOL
     Dosage: UNK
  4. AZILSARTAN [Concomitant]
     Active Substance: AZILSARTAN KAMEDOXOMIL
     Dosage: UNK
  5. ICODEXTRIN [Suspect]
     Active Substance: ICODEXTRIN
     Indication: END STAGE RENAL DISEASE
     Dosage: UNK (8?H)
     Dates: start: 201510
  6. FEXOFENADINE [Concomitant]
     Active Substance: FEXOFENADINE HYDROCHLORIDE
     Dosage: UNK
  7. CALCIUM CARBONATE. [Concomitant]
     Active Substance: CALCIUM CARBONATE
     Dosage: UNK
  8. POVIDONE?IODINE. [Suspect]
     Active Substance: POVIDONE-IODINE
     Indication: STERILISATION
     Dosage: UNK UNK, DAILY
  9. GLUCOSE [Concomitant]
     Active Substance: DEXTROSE
     Indication: END STAGE RENAL DISEASE
     Dosage: UNK (4?H, 3 CYCLES)
     Dates: start: 201510
  10. CHLORHEXIDINE GLUCONATE. [Suspect]
     Active Substance: CHLORHEXIDINE GLUCONATE
     Indication: STERILISATION
     Dosage: UNK, DAILY

REACTIONS (1)
  - Pemphigoid [Recovering/Resolving]

NARRATIVE: CASE EVENT DATE: 2017
